FAERS Safety Report 10071891 (Version 3)
Quarter: 2014Q2

REPORT INFORMATION
  Report Type: Spontaneous
  Country: IT (occurrence: IT)
  Receive Date: 20140411
  Receipt Date: 20140418
  Transmission Date: 20141212
  Serious: Yes (Hospitalization)
  Sender: FDA-Public Use
  Company Number: IT-009507513-1404ITA002206

PATIENT
  Age: 43 Year
  Sex: Male

DRUGS (3)
  1. VICTRELIS [Suspect]
     Indication: HEPATIC CIRRHOSIS
     Dosage: FREQUENCY-DAILY,DAILY DOSAGE-2400 MG
     Route: 048
     Dates: start: 20131125, end: 20140114
  2. REBETOL [Suspect]
     Indication: HEPATIC CIRRHOSIS
     Dosage: FREQUENCY-DAILY,DAILY DOSAGE-1000MG
     Route: 048
     Dates: start: 20131028, end: 20140114
  3. PEGASYS [Suspect]
     Indication: HEPATIC CIRRHOSIS
     Dosage: WEEKLY
     Route: 058
     Dates: start: 20131028, end: 20140114

REACTIONS (1)
  - Febrile neutropenia [Recovered/Resolved]
